FAERS Safety Report 15781918 (Version 1)
Quarter: 2019Q1

REPORT INFORMATION
  Report Type: Spontaneous
  Country: IL (occurrence: IL)
  Receive Date: 20190102
  Receipt Date: 20190102
  Transmission Date: 20190417
  Serious: Yes (Life-Threatening, Hospitalization)
  Sender: FDA-Public Use
  Company Number: IL-MYLANLABS-2018M1096676

PATIENT
  Age: 78 Year
  Sex: Male

DRUGS (2)
  1. APIXABAN [Concomitant]
     Active Substance: APIXABAN
     Indication: ANTICOAGULANT THERAPY
     Route: 065
  2. PREDNISONE. [Suspect]
     Active Substance: PREDNISONE
     Indication: DEAFNESS
     Dosage: HIGH-DOSE
     Route: 048
     Dates: start: 201704

REACTIONS (11)
  - Lactic acidosis [Recovering/Resolving]
  - Encephalopathy [Recovering/Resolving]
  - Bacteraemia [Recovered/Resolved]
  - Respiratory failure [Recovering/Resolving]
  - Streptococcal infection [Recovered/Resolved]
  - Toxic shock syndrome [Recovering/Resolving]
  - Liver injury [Recovering/Resolving]
  - Multiple organ dysfunction syndrome [Recovering/Resolving]
  - Strongyloidiasis [Recovered/Resolved]
  - Acute kidney injury [Recovering/Resolving]
  - Coagulopathy [Recovering/Resolving]

NARRATIVE: CASE EVENT DATE: 2017
